FAERS Safety Report 18354949 (Version 3)
Quarter: 2024Q2

REPORT INFORMATION
  Report Type: Spontaneous
  Country: US (occurrence: US)
  Receive Date: 20201007
  Receipt Date: 20240502
  Transmission Date: 20240715
  Serious: Yes (Hospitalization, Other)
  Sender: FDA-Public Use
  Company Number: US-PFIZER INC-2020383811

PATIENT
  Age: 65 Year
  Sex: Male
  Weight: 107.94 kg

DRUGS (8)
  1. INLYTA [Suspect]
     Active Substance: AXITINIB
     Indication: Renal cancer
     Dosage: 5 MG, TWICE DAILY
     Route: 048
     Dates: start: 20200911, end: 202009
  2. INLYTA [Suspect]
     Active Substance: AXITINIB
     Dosage: UNK
  3. AMLODIPINE BESYLATE;BENAZEPRIL [Concomitant]
     Dosage: UNK
  4. VITAMIN D3 [Concomitant]
     Active Substance: CHOLECALCIFEROL
     Dosage: 10 UG, UNKNOWN FREQUENCY
  5. LOSARTAN POTASSIUM [Concomitant]
     Active Substance: LOSARTAN POTASSIUM
     Dosage: 100 MG, UNKNOWN FREQUENCY
  6. OPDIVO [Concomitant]
     Active Substance: NIVOLUMAB
     Dosage: UNK
  7. TAMSULOSIN HYDROCHLORIDE [Concomitant]
     Active Substance: TAMSULOSIN HYDROCHLORIDE
     Dosage: 0.4 MG, UNKNOWN FREQUENCY
  8. VITAMIN E [Concomitant]
     Active Substance: .ALPHA.-TOCOPHEROL
     Dosage: 1000 IU, UNKNOWN FREQUENCY

REACTIONS (4)
  - Intracranial aneurysm [Recovered/Resolved]
  - Hypertension [Recovered/Resolved]
  - Aneurysm repair [Unknown]
  - Neoplasm progression [Not Recovered/Not Resolved]

NARRATIVE: CASE EVENT DATE: 20200901
